FAERS Safety Report 7368928-0 (Version None)
Quarter: 2011Q1

REPORT INFORMATION
  Report Type: 
  Country: None (occurrence: None)
  Receive Date: 20110321
  Receipt Date: 20110321
  Transmission Date: 20110831
  Serious: Yes (Hospitalization)
  Sender: FDA-Public Use
  Company Number: None

PATIENT
  Sex: Male
  Weight: 87 kg

DRUGS (3)
  1. BEVACIZUMAB (RHUMAB VEGF) [Suspect]
     Dosage: 1365 MG
     Dates: end: 20110301
  2. CARBOPLATIN [Suspect]
     Dosage: 870 MG
     Dates: end: 20110301
  3. PACLITAXEL [Suspect]
     Dosage: 400 MG
     Dates: end: 20110301

REACTIONS (2)
  - FEBRILE NEUTROPENIA [None]
  - PANCYTOPENIA [None]
